FAERS Safety Report 14226635 (Version 4)
Quarter: 2018Q2

REPORT INFORMATION
  Report Type: Report from Study
  Country: JP (occurrence: JP)
  Receive Date: 20171127
  Receipt Date: 20180611
  Transmission Date: 20180711
  Serious: Yes (Hospitalization)
  Sender: FDA-Public Use
  Company Number: JP-PFIZER INC-2017083924

PATIENT
  Age: 86 Year
  Sex: Male
  Weight: 57 kg

DRUGS (13)
  1. XELJANZ [Suspect]
     Active Substance: TOFACITINIB CITRATE
     Dosage: 5 MG, 2X/DAY
     Route: 048
     Dates: start: 20161128, end: 20170215
  2. CARERAM [Concomitant]
     Active Substance: IGURATIMOD
     Dosage: 50 MG, DAILY
     Route: 048
     Dates: start: 20170125, end: 20170215
  3. TAKECAB [Concomitant]
     Active Substance: VONOPRAZAN FUMURATE
     Indication: PROPHYLAXIS
     Dosage: UNK
     Route: 048
     Dates: start: 20161128
  4. SELBEX [Concomitant]
     Active Substance: TEPRENONE
     Indication: PROPHYLAXIS
     Dosage: UNK
     Route: 048
     Dates: start: 20161128
  5. XELJANZ [Suspect]
     Active Substance: TOFACITINIB CITRATE
     Indication: RHEUMATOID ARTHRITIS
     Dosage: 5 MG, 1X/DAY
     Route: 048
     Dates: start: 20161005, end: 20161127
  6. CELECOX [Concomitant]
     Active Substance: CELECOXIB
     Dosage: UNK
     Route: 048
     Dates: start: 20161205
  7. CARERAM [Concomitant]
     Active Substance: IGURATIMOD
     Indication: RHEUMATOID ARTHRITIS
     Dosage: 25 MG, DAILY
     Route: 048
     Dates: start: 20161205, end: 20170124
  8. AVELOX [Concomitant]
     Active Substance: MOXIFLOXACIN HYDROCHLORIDE
     Dosage: UNK
     Route: 048
  9. ALDACTONE A [Concomitant]
     Active Substance: SPIRONOLACTONE
     Dosage: UNK
     Route: 048
     Dates: start: 20170508
  10. XELJANZ [Suspect]
     Active Substance: TOFACITINIB CITRATE
     Dosage: 5 MG, 2X/DAY
     Route: 048
     Dates: start: 20170508
  11. MOBIC [Concomitant]
     Active Substance: MELOXICAM
     Dosage: UNK
     Route: 048
  12. LOXONIN [Concomitant]
     Active Substance: LOXOPROFEN SODIUM
     Dosage: UNK
     Route: 048
     Dates: start: 20161128
  13. CRAVIT [Concomitant]
     Active Substance: LEVOFLOXACIN
     Dosage: UNK
     Route: 048
     Dates: start: 20161128

REACTIONS (6)
  - Pulmonary alveolar haemorrhage [Recovering/Resolving]
  - Anaemia [Unknown]
  - Peritonitis [Recovering/Resolving]
  - Diverticulum intestinal [Recovering/Resolving]
  - Diverticular perforation [Recovering/Resolving]
  - Acute respiratory failure [Unknown]

NARRATIVE: CASE EVENT DATE: 20170125
